FAERS Safety Report 13061705 (Version 1)
Quarter: 2016Q4

REPORT INFORMATION
  Report Type: Spontaneous
  Country: US (occurrence: US)
  Receive Date: 20161226
  Receipt Date: 20161226
  Transmission Date: 20170207
  Serious: No
  Sender: FDA-Public Use
  Company Number: US-NOVEN PHARMACEUTICALS, INC.-US2016000080

PATIENT

DRUGS (7)
  1. METOPROLOL. [Concomitant]
     Active Substance: METOPROLOL
     Indication: HYPERTENSION
     Dosage: 50 MG, UNK
  2. AZELAIC ACID W/GLYCEROL [Concomitant]
     Indication: ROSACEA
  3. ZANTAC [Concomitant]
     Active Substance: RANITIDINE HYDROCHLORIDE
     Dosage: 300 MG, UNK
  4. BENZOYL PEROXIDE. [Concomitant]
     Active Substance: BENZOYL PEROXIDE
     Indication: ROSACEA
     Dosage: UNK %, UNK
  5. CHLORTHALIDONE. [Concomitant]
     Active Substance: CHLORTHALIDONE
     Indication: HYPERTENSION
  6. PRAVASTATIN. [Concomitant]
     Active Substance: PRAVASTATIN
     Indication: HYPERLIPIDAEMIA
     Dosage: 20 MG, UNK
  7. MINIVELLE [Suspect]
     Active Substance: ESTRADIOL
     Indication: ATROPHY
     Dosage: 0.1 MG, UNKNOWN
     Route: 062
     Dates: start: 2015

REACTIONS (3)
  - Application site irritation [Unknown]
  - Application site erythema [Unknown]
  - Off label use [Unknown]
